FAERS Safety Report 7362302-9 (Version None)
Quarter: 2011Q1

REPORT INFORMATION
  Report Type: 
  Country: None (occurrence: None)
  Receive Date: 20110318
  Receipt Date: 20110315
  Transmission Date: 20110831
  Serious: Yes (Death)
  Sender: FDA-Public Use
  Company Number: PHHY2011US21155

PATIENT
  Sex: Female

DRUGS (3)
  1. GLEEVEC [Suspect]
     Indication: NEOPLASM MALIGNANT
     Route: 048
     Dates: start: 20080122, end: 20100301
  2. GLEEVEC [Suspect]
     Dosage: 400 MG, DAILY
     Route: 048
     Dates: start: 20100702
  3. SUTENT [Concomitant]
     Dates: start: 20100224, end: 20100729

REACTIONS (1)
  - DEATH [None]
